FAERS Safety Report 19029937 (Version 1)
Quarter: 2021Q1

REPORT INFORMATION
  Report Type: Other
  Country: US (occurrence: US)
  Receive Date: 20210319
  Receipt Date: 20210319
  Transmission Date: 20210420
  Serious: Yes (Other)
  Sender: FDA-Public Use
  Company Number: US-ROCHE-2788059

PATIENT
  Age: 59 Year
  Sex: Female
  Weight: 67.65 kg

DRUGS (3)
  1. AVONEX [Concomitant]
     Active Substance: INTERFERON BETA-1A
  2. OCREVUS [Suspect]
     Active Substance: OCRELIZUMAB
     Indication: RELAPSING MULTIPLE SCLEROSIS
     Route: 042
     Dates: start: 202008
  3. GILENYA [Concomitant]
     Active Substance: FINGOLIMOD HYDROCHLORIDE

REACTIONS (9)
  - Dyskinesia [Unknown]
  - Restlessness [Unknown]
  - Multiple sclerosis [Unknown]
  - Muscular weakness [Unknown]
  - COVID-19 [Unknown]
  - Insomnia [Unknown]
  - Pain in extremity [Unknown]
  - Fatigue [Unknown]
  - Restless legs syndrome [Unknown]

NARRATIVE: CASE EVENT DATE: 202008
